FAERS Safety Report 4319993-6 (Version None)
Quarter: 2004Q1

REPORT INFORMATION
  Report Type: 
  Country: None (occurrence: None)
  Receive Date: 20040315
  Receipt Date: 20031217
  Transmission Date: 20041129
  Serious: No
  Sender: FDA-Public Use
  Company Number: 2003190882US

PATIENT
  Age: 50 Year
  Sex: Male

DRUGS (1)
  1. BEXTRA [Suspect]
     Indication: RHEUMATOID ARTHRITIS
     Dosage: 10 MG, ORAL; 20 MG ,ORAL
     Route: 048

REACTIONS (1)
  - CORNEAL OEDEMA [None]
